FAERS Safety Report 26173290 (Version 1)
Quarter: 2025Q4

REPORT INFORMATION
  Report Type: Spontaneous
  Country: US (occurrence: US)
  Receive Date: 20251218
  Receipt Date: 20251218
  Transmission Date: 20260117
  Serious: No
  Sender: DEXCEL LTD.
  Company Number: US-DEXPHARM-2025-3349

PATIENT
  Age: 60 Year
  Sex: Female

DRUGS (2)
  1. VENLAFAXINE HYDROCHLORIDE [Suspect]
     Active Substance: VENLAFAXINE HYDROCHLORIDE
  2. VENLAFAXINE HYDROCHLORIDE [Suspect]
     Active Substance: VENLAFAXINE HYDROCHLORIDE

REACTIONS (3)
  - Tremor [Not Recovered/Not Resolved]
  - Malaise [Recovered/Resolved]
  - Vision blurred [Recovered/Resolved]
